FAERS Safety Report 20506785 (Version 2)
Quarter: 2022Q1

REPORT INFORMATION
  Report Type: Spontaneous
  Country: US (occurrence: US)
  Receive Date: 20220223
  Receipt Date: 20220316
  Transmission Date: 20220424
  Serious: No
  Sender: FDA-Public Use
  Company Number: US-TEVA-2022-US-2009628

PATIENT
  Age: 30 Year
  Sex: Female

DRUGS (1)
  1. AMPHETAMINE\DEXTROAMPHETAMINE [Suspect]
     Active Substance: AMPHETAMINE\DEXTROAMPHETAMINE
     Indication: Attention deficit hyperactivity disorder
     Dosage: SINCE MANY YEARS
     Route: 065
     Dates: start: 20220210

REACTIONS (5)
  - Drug ineffective [Unknown]
  - Speech disorder [Unknown]
  - Psychomotor hyperactivity [Unknown]
  - Drug hypersensitivity [Unknown]
  - Product quality issue [Unknown]

NARRATIVE: CASE EVENT DATE: 20220210
